FAERS Safety Report 18467516 (Version 2)
Quarter: 2020Q4

REPORT INFORMATION
  Report Type: Spontaneous
  Country: MY (occurrence: MY)
  Receive Date: 20201105
  Receipt Date: 20201217
  Transmission Date: 20210114
  Serious: Yes (Hospitalization)
  Sender: FDA-Public Use
  Company Number: MY-NEBO-PC005941

PATIENT
  Age: 25 Year
  Sex: Female

DRUGS (1)
  1. MONOFER [Suspect]
     Active Substance: IRON ISOMALTOSIDE 1000
     Indication: ANAEMIA
     Route: 042
     Dates: start: 2020, end: 2020

REACTIONS (2)
  - Maternal exposure during pregnancy [Recovered/Resolved]
  - Seizure [Recovered/Resolved]
